FAERS Safety Report 7479686-3 (Version None)
Quarter: 2011Q2

REPORT INFORMATION
  Report Type: 
  Country: None (occurrence: None)
  Receive Date: 20110513
  Receipt Date: 20110105
  Transmission Date: 20111010
  Serious: Yes (Hospitalization, Other)
  Sender: FDA-Public Use
  Company Number: US-BAYER-201023063NA

PATIENT
  Age: 26 Year
  Sex: Female
  Weight: 58.957 kg

DRUGS (15)
  1. TAGAMET [Concomitant]
  2. YASMIN [Suspect]
     Dosage: UNK UNK, UNK
     Route: 048
     Dates: start: 20060101, end: 20080715
  3. ALBUTEROL [Concomitant]
  4. IBUPROFEN [Concomitant]
  5. FIORICET [Concomitant]
  6. PERCOCET [Concomitant]
     Indication: PAIN
     Dosage: UNK
     Dates: start: 20070227
  7. ZOMIG [Concomitant]
  8. VITAMIN C [Concomitant]
  9. FOLIC ACID [Concomitant]
  10. CLARITIN [Concomitant]
  11. BETAMETHASONE [Concomitant]
  12. YAZ [Suspect]
     Indication: ORAL CONTRACEPTION
     Dosage: UNK UNK, QD
     Route: 048
     Dates: start: 20061101, end: 20080201
  13. BENADRYL [Concomitant]
  14. MEDROL [Concomitant]
  15. FICORCET [Concomitant]

REACTIONS (8)
  - ABDOMINAL PAIN UPPER [None]
  - GALLBLADDER DISORDER [None]
  - ABDOMINAL PAIN [None]
  - BACK PAIN [None]
  - CHOLELITHIASIS [None]
  - NAUSEA [None]
  - VOMITING [None]
  - CHOLECYSTITIS CHRONIC [None]
